FAERS Safety Report 8624614-8 (Version None)
Quarter: 2012Q3

REPORT INFORMATION
  Report Type: 
  Country: None (occurrence: None)
  Receive Date: 20120827
  Receipt Date: 20120820
  Transmission Date: 20120928
  Serious: Yes (Hospitalization, Other)
  Sender: FDA-Public Use
  Company Number: BR-PFIZER INC-2012203515

PATIENT
  Age: 63 Year
  Sex: Male

DRUGS (4)
  1. PLAVIX [Concomitant]
     Indication: STENT PLACEMENT
     Dosage: UNK
     Dates: start: 20120201
  2. LIPITOR [Suspect]
     Indication: BLOOD CHOLESTEROL ABNORMAL
  3. LIPITOR [Suspect]
     Indication: BLOOD TRIGLYCERIDES ABNORMAL
     Dosage: 20 MG, 1X/DAY
     Route: 048
     Dates: start: 20110501
  4. COUMADIN [Concomitant]
     Indication: ANTICOAGULANT THERAPY
     Dosage: UNK
     Dates: start: 20120201

REACTIONS (7)
  - NERVOUS SYSTEM DISORDER [None]
  - CAROTID ARTERY OCCLUSION [None]
  - ISCHAEMIC STROKE [None]
  - CAROTID ARTERIOSCLEROSIS [None]
  - CORONARY ARTERY OCCLUSION [None]
  - MYALGIA [None]
  - PAIN [None]
